FAERS Safety Report 15615003 (Version 4)
Quarter: 2019Q1

REPORT INFORMATION
  Report Type: Report from Study
  Country: CN (occurrence: CN)
  Receive Date: 20181114
  Receipt Date: 20190319
  Transmission Date: 20190417
  Serious: Yes (Hospitalization)
  Sender: FDA-Public Use
  Company Number: CN-ROCHE-2212704

PATIENT
  Age: 65 Year
  Sex: Female
  Weight: 78.5 kg

DRUGS (27)
  1. RABEPRAZOLE SODIUM. [Concomitant]
     Active Substance: RABEPRAZOLE SODIUM
     Route: 065
     Dates: start: 20181112, end: 20181112
  2. ERICA [Concomitant]
     Route: 065
     Dates: start: 20181203, end: 20181203
  3. HAEMOCOAGULASE AGKISTRODON [Concomitant]
     Route: 065
     Dates: start: 20181112, end: 20181112
  4. MUPIROCIN. [Concomitant]
     Active Substance: MUPIROCIN
     Indication: PARONYCHIA
     Route: 065
     Dates: start: 20180920
  5. HEPARIN SODIUM. [Concomitant]
     Active Substance: HEPARIN SODIUM
     Route: 065
     Dates: start: 20181107, end: 20181109
  6. HYDROCORTISONE BUTYRATE. [Concomitant]
     Active Substance: HYDROCORTISONE BUTYRATE
     Route: 065
     Dates: start: 20181105, end: 20181105
  7. PERTUZUMAB. [Suspect]
     Active Substance: PERTUZUMAB
     Dosage: MAINTENANCE DOSE?DATE OF MOST RECENT DOSE OF BLINDED PERTUZUMAB OF 420 MG/14 ML PRIOR TO SAE ONSET 3
     Route: 042
     Dates: start: 20170615
  8. IODOPHOR [Concomitant]
     Active Substance: POVIDONE-IODINE
     Indication: PARONYCHIA
     Route: 065
     Dates: start: 20181011, end: 20181028
  9. MUPIROCIN. [Concomitant]
     Active Substance: MUPIROCIN
     Indication: PARONYCHIA
     Route: 065
     Dates: start: 20180920
  10. HAEMOCOAGULASE AGKISTRODON [Concomitant]
     Route: 065
     Dates: start: 20181113, end: 20181113
  11. DEZOCINE [Concomitant]
     Active Substance: DEZOCINE
     Route: 065
     Dates: start: 20181112, end: 20181112
  12. CALCIUM DOBESILATE [Concomitant]
     Active Substance: CALCIUM DOBESILATE
     Route: 065
     Dates: start: 20181203, end: 20181210
  13. CEFTIZOXIME SODIUM [Concomitant]
     Active Substance: CEFTIZOXIME SODIUM
     Route: 065
     Dates: start: 20181112, end: 20181116
  14. KETOROLAC TROMETHAMINE. [Concomitant]
     Active Substance: KETOROLAC TROMETHAMINE
     Route: 065
     Dates: start: 20181105, end: 20181109
  15. RIVAROXABAN [Concomitant]
     Active Substance: RIVAROXABAN
     Route: 065
     Dates: start: 20181203, end: 20190103
  16. DOCETAXEL. [Suspect]
     Active Substance: DOCETAXEL
     Indication: HER-2 POSITIVE BREAST CANCER
     Route: 042
     Dates: start: 20170524
  17. IODOPHOR [Concomitant]
     Active Substance: POVIDONE-IODINE
     Indication: PARONYCHIA
     Route: 065
     Dates: start: 20181011, end: 20181028
  18. DOLASETRON MESYLATE [Concomitant]
     Active Substance: DOLASETRON MESYLATE
     Route: 065
     Dates: start: 20181112, end: 20181112
  19. PERTUZUMAB. [Suspect]
     Active Substance: PERTUZUMAB
     Indication: HER-2 POSITIVE BREAST CANCER
     Dosage: LOADING DOSE
     Route: 042
     Dates: start: 20170524, end: 20170524
  20. TRASTUZUMAB. [Suspect]
     Active Substance: TRASTUZUMAB
     Indication: HER-2 POSITIVE BREAST CANCER
     Dosage: LOADING DOSE
     Route: 042
     Dates: start: 20170524, end: 20170524
  21. LORATADINE. [Concomitant]
     Active Substance: LORATADINE
     Route: 065
     Dates: start: 20181105, end: 20181118
  22. RIBONUCLEIC ACID [Concomitant]
     Active Substance: RIBONUCLEIC ACID
     Route: 065
     Dates: start: 20181109, end: 20181115
  23. HAEMOCOAGULASE AGKISTRODON [Concomitant]
     Route: 065
     Dates: start: 20181115, end: 20181116
  24. DEZOCINE [Concomitant]
     Active Substance: DEZOCINE
     Route: 065
     Dates: start: 20181112, end: 20181112
  25. IMRECOXIB [Concomitant]
     Indication: PAIN
     Route: 065
     Dates: start: 20181203, end: 20181210
  26. TRASTUZUMAB. [Suspect]
     Active Substance: TRASTUZUMAB
     Dosage: MAINTENANCE DOSE?DATE OF MOST RECENT DOSE OF TRASTUZUMAB OF 450 MG PRIOR TO SAE ONSET 31/OCT/2018
     Route: 042
     Dates: start: 20170615
  27. ALPROSTADIL. [Concomitant]
     Active Substance: ALPROSTADIL
     Route: 065
     Dates: start: 20181116, end: 20181126

REACTIONS (1)
  - Fracture [Recovered/Resolved with Sequelae]

NARRATIVE: CASE EVENT DATE: 20181030
